FAERS Safety Report 17043407 (Version 1)
Quarter: 2019Q4

REPORT INFORMATION
  Report Type: Spontaneous
  Country: US (occurrence: US)
  Receive Date: 20191017
  Receipt Date: 20191017
  Transmission Date: 20200122
  Serious: Yes (Other)
  Sender: FDA-Public Use
  Company Number: None

PATIENT
  Age: 64 Year
  Sex: Male
  Weight: 95.71 kg

DRUGS (1)
  1. AZATHIOPRINE 50MG [Suspect]
     Active Substance: AZATHIOPRINE
     Indication: RENAL TRANSPLANT
     Route: 048

REACTIONS (1)
  - Malaise [None]
